FAERS Safety Report 4751535-3 (Version None)
Quarter: 2005Q3

REPORT INFORMATION
  Report Type: 
  Country: None (occurrence: None)
  Receive Date: 20050823
  Receipt Date: 20050823
  Transmission Date: 20060218
  Serious: Yes (Hospitalization)
  Sender: FDA-Public Use
  Company Number: None

PATIENT
  Age: 81 Year
  Sex: Male
  Weight: 99 kg

DRUGS (4)
  1. METOPROLOL 25 [Suspect]
     Indication: HYPERTENSION
     Dosage: BID
     Dates: start: 20050502
  2. LISINOPRIL [Suspect]
     Indication: HYPERTENSION
     Dosage: QD
     Dates: start: 20050502
  3. TERAZOSIN 2MG [Suspect]
     Indication: BENIGN PROSTATIC HYPERPLASIA
     Dosage: QHS
     Dates: start: 20050502
  4. FUROSEMIDE [Suspect]
     Indication: HYPERTENSION
     Dosage: QAM
     Dates: start: 20050502

REACTIONS (3)
  - CHEST PAIN [None]
  - DIZZINESS [None]
  - HYPOTENSION [None]
